FAERS Safety Report 9372299 (Version 1)
Quarter: 2013Q2

REPORT INFORMATION
  Report Type: Report from Study
  Country: US (occurrence: US)
  Receive Date: 20130627
  Receipt Date: 20130627
  Transmission Date: 20140414
  Serious: Yes (Hospitalization, Other)
  Sender: FDA-Public Use
  Company Number: US-MYLANLABS-2012S1020164

PATIENT
  Age: 56 Year
  Sex: Male
  Weight: 94.8 kg

DRUGS (10)
  1. CLOZAPINE TABLETS [Suspect]
     Route: 048
     Dates: start: 20120509, end: 20120924
  2. TOPROL [Concomitant]
     Dosage: XL
  3. LOVAZA [Concomitant]
  4. NEXIUM [Concomitant]
  5. TRICOR [Concomitant]
  6. METFORMIN [Concomitant]
  7. GABAPENTIN [Concomitant]
  8. LORTAB [Concomitant]
  9. LEXAPRO [Concomitant]
  10. KLONOPIN [Concomitant]

REACTIONS (1)
  - Granulocytopenia [Recovered/Resolved]
